FAERS Safety Report 7253904-9 (Version None)
Quarter: 2011Q1

REPORT INFORMATION
  Report Type: 
  Country: None (occurrence: None)
  Receive Date: 20110129
  Receipt Date: 20100412
  Transmission Date: 20110831
  Serious: No
  Sender: FDA-Public Use
  Company Number: US-ABBOTT-10P-163-0638878-00

PATIENT
  Sex: Male
  Weight: 30.418 kg

DRUGS (2)
  1. ENTOCORT EC [Concomitant]
     Indication: CROHN'S DISEASE
     Dosage: WAS ON A TAPER DOSE
     Dates: start: 20091101, end: 20100329
  2. HUMIRA [Suspect]
     Indication: CROHN'S DISEASE
     Route: 058
     Dates: start: 20091001

REACTIONS (1)
  - CROHN'S DISEASE [None]
